FAERS Safety Report 7331104-1 (Version None)
Quarter: 2011Q1

REPORT INFORMATION
  Report Type: 
  Country: None (occurrence: None)
  Receive Date: 20110304
  Receipt Date: 20110224
  Transmission Date: 20110831
  Serious: Yes (Hospitalization, Other)
  Sender: FDA-Public Use
  Company Number: CA-AMGEN-CANSP2011010882

PATIENT
  Age: 78 Year
  Sex: Female

DRUGS (1)
  1. ARANESP [Suspect]
     Indication: RENAL DISORDER
     Dosage: 30 A?G, Q2WK
     Route: 058

REACTIONS (2)
  - ABDOMINAL MASS [None]
  - ABDOMINAL PAIN [None]
